FAERS Safety Report 16446371 (Version 3)
Quarter: 2019Q3

REPORT INFORMATION
  Report Type: Spontaneous
  Country: US (occurrence: US)
  Receive Date: 20190618
  Receipt Date: 20190911
  Transmission Date: 20191004
  Serious: Yes (Other)
  Sender: FDA-Public Use
  Company Number: US-ASTRAZENECA-2019SE10126

PATIENT
  Age: 22977 Day
  Sex: Male
  Weight: 108 kg

DRUGS (20)
  1. PRILOSEC [Suspect]
     Active Substance: OMEPRAZOLE MAGNESIUM
     Indication: GASTROOESOPHAGEAL REFLUX DISEASE
     Route: 048
  2. PROBIOTIC [Concomitant]
     Active Substance: PROBIOTICS NOS
  3. DOXYCYCLINE. [Concomitant]
     Active Substance: DOXYCYCLINE
  4. ACIPHEX [Concomitant]
     Active Substance: RABEPRAZOLE SODIUM
  5. ALPROSTADIL. [Concomitant]
     Active Substance: ALPROSTADIL
  6. METOPROLOL. [Concomitant]
     Active Substance: METOPROLOL
  7. BUPROPION. [Concomitant]
     Active Substance: BUPROPION
  8. LOVAZA [Concomitant]
     Active Substance: OMEGA-3-ACID ETHYL ESTERS
  9. PROTONIX [Suspect]
     Active Substance: PANTOPRAZOLE SODIUM
     Indication: GASTROOESOPHAGEAL REFLUX DISEASE
     Dosage: GENERIC
     Route: 065
     Dates: start: 2012, end: 2014
  10. LIPITOR [Concomitant]
     Active Substance: ATORVASTATIN CALCIUM
  11. CHANTIX [Concomitant]
     Active Substance: VARENICLINE TARTRATE
  12. PRILOSEC [Suspect]
     Active Substance: OMEPRAZOLE MAGNESIUM
     Indication: GASTROOESOPHAGEAL REFLUX DISEASE
     Dosage: GENERIC
     Route: 065
     Dates: start: 2014
  13. LEVITRA [Concomitant]
     Active Substance: VARDENAFIL HYDROCHLORIDE
  14. SPIRIVA [Concomitant]
     Active Substance: TIOTROPIUM BROMIDE MONOHYDRATE
  15. PROTONIX [Suspect]
     Active Substance: PANTOPRAZOLE SODIUM
     Indication: GASTROOESOPHAGEAL REFLUX DISEASE
     Route: 065
     Dates: start: 2012
  16. TRICOR [Concomitant]
     Active Substance: FENOFIBRATE
  17. PROAIR HFA [Concomitant]
     Active Substance: ALBUTEROL SULFATE
  18. VASCEPA [Concomitant]
     Active Substance: ICOSAPENT ETHYL
  19. NEXIUM [Suspect]
     Active Substance: ESOMEPRAZOLE MAGNESIUM
     Indication: GASTROOESOPHAGEAL REFLUX DISEASE
     Route: 048
     Dates: start: 2011, end: 2012
  20. ASPIRIN. [Concomitant]
     Active Substance: ASPIRIN

REACTIONS (2)
  - Chronic kidney disease [Not Recovered/Not Resolved]
  - Chronic kidney disease-mineral and bone disorder [Unknown]

NARRATIVE: CASE EVENT DATE: 20130429
